FAERS Safety Report 12213955 (Version 1)
Quarter: 2016Q1

REPORT INFORMATION
  Report Type: Spontaneous
  Country: PL (occurrence: PL)
  Receive Date: 20160328
  Receipt Date: 20160328
  Transmission Date: 20160526
  Serious: Yes (Other)
  Sender: FDA-Public Use
  Company Number: PL-ACTAVIS-2016-05691

PATIENT
  Age: 82 Year
  Sex: Male

DRUGS (6)
  1. PREDNISOLONE (UNKNOWN) [Suspect]
     Active Substance: PREDNISOLONE
     Indication: PLASMA CELL MYELOMA
     Dosage: 30 MG, DAILY (ON DAYS 1-4 OF EACH CYCLE)
     Route: 065
  2. MELPHALAN [Suspect]
     Active Substance: MELPHALAN
     Indication: PLASMA CELL MYELOMA
     Dosage: 9 MG/M2, CYCLICAL (ON DAYS 1-4)
     Route: 065
  3. BORTEZOMIB (UNKNOWN) [Suspect]
     Active Substance: BORTEZOMIB
     Indication: PLASMA CELL MYELOMA
     Dosage: 1.3 MG/M2, CYCLICAL (TWICE A WEEK FROM THE 1ST TO THE 4TH CYCLE)
     Route: 058
  4. BORTEZOMIB (UNKNOWN) [Suspect]
     Active Substance: BORTEZOMIB
     Dosage: ONCE A WEEK, FROM THE 5TH TO THE 9TH CYCLE
     Route: 065
  5. DARBEPOETIN ALFA [Concomitant]
     Active Substance: DARBEPOETIN ALFA
     Indication: NORMOCHROMIC NORMOCYTIC ANAEMIA
     Dosage: 500 MCG/ML EVERY THREE WEEKS
     Route: 065
  6. ACETYLSALICYLIC ACID [Concomitant]
     Active Substance: ASPIRIN
     Indication: PRODUCT USED FOR UNKNOWN INDICATION
     Dosage: UNK
     Route: 065

REACTIONS (3)
  - Thrombocytopenia [Unknown]
  - Deep vein thrombosis [Unknown]
  - Neutropenia [Unknown]
